FAERS Safety Report 4989698-7 (Version None)
Quarter: 2006Q2

REPORT INFORMATION
  Report Type: 
  Country: None (occurrence: None)
  Receive Date: 20060501
  Receipt Date: 20060418
  Transmission Date: 20061013
  Serious: Yes (Death, Hospitalization)
  Sender: FDA-Public Use
  Company Number: 163-C5013-06040351

PATIENT
  Age: 54 Year
  Sex: Male
  Weight: 63.3 kg

DRUGS (9)
  1. REVLIMID [Suspect]
     Indication: AMYLOIDOSIS
     Dosage: 25 MG, QD X21D, ORAL
     Route: 048
     Dates: start: 20060324, end: 20060410
  2. CELEXA [Concomitant]
  3. DILANTIN [Concomitant]
  4. PROTONIX [Concomitant]
  5. TRAZODONE HCL [Concomitant]
  6. DARVOCET N (PROPACET) [Concomitant]
  7. BENZAMYCIN (OINTMENT) [Concomitant]
  8. WARFARIN SODIUM [Concomitant]
  9. LORAZEPAM [Concomitant]

REACTIONS (9)
  - CARDIAC FAILURE [None]
  - DIARRHOEA HAEMORRHAGIC [None]
  - DISEASE PROGRESSION [None]
  - HYPOTENSION [None]
  - INTERNATIONAL NORMALISED RATIO INCREASED [None]
  - NAUSEA [None]
  - PAIN [None]
  - PLEURAL EFFUSION [None]
  - RETCHING [None]
